FAERS Safety Report 11940175 (Version 1)
Quarter: 2016Q1

REPORT INFORMATION
  Report Type: Spontaneous
  Country: US (occurrence: US)
  Receive Date: 20160122
  Receipt Date: 20160122
  Transmission Date: 20160526
  Serious: No
  Sender: FDA-Public Use
  Company Number: US-009507513-1601USA008262

PATIENT
  Sex: Female

DRUGS (1)
  1. NEXPLANON [Suspect]
     Active Substance: ETONOGESTREL
     Dosage: UNK
     Route: 059
     Dates: start: 20151001

REACTIONS (4)
  - Device difficult to use [Recovered/Resolved]
  - Product quality issue [Unknown]
  - Needle issue [Unknown]
  - Pain [Unknown]

NARRATIVE: CASE EVENT DATE: 20151001
